FAERS Safety Report 12054507 (Version 1)
Quarter: 2016Q1

REPORT INFORMATION
  Report Type: Report from Study
  Country: US (occurrence: US)
  Receive Date: 20160209
  Receipt Date: 20160209
  Transmission Date: 20160526
  Serious: No
  Sender: FDA-Public Use
  Company Number: US-ABBVIE-15P-163-1469118-00

PATIENT
  Age: 56 Year
  Sex: Female

DRUGS (1)
  1. HUMIRA [Suspect]
     Active Substance: ADALIMUMAB
     Indication: PRODUCT USED FOR UNKNOWN INDICATION
     Dosage: INJECT THE CONTENT OF 1 PEN UNDER THE SKIN ONCE EVERY TWO WEEKS.
     Route: 065
     Dates: start: 201508

REACTIONS (2)
  - Drug dose omission [Unknown]
  - Condition aggravated [Unknown]
